FAERS Safety Report 21918046 (Version 2)
Quarter: 2023Q2

REPORT INFORMATION
  Report Type: Spontaneous
  Country: US (occurrence: US)
  Receive Date: 20230127
  Receipt Date: 20230403
  Transmission Date: 20230722
  Serious: No
  Sender: FDA-Public Use
  Company Number: US-ALXN-A202300767

PATIENT
  Age: 11 Year
  Sex: Female

DRUGS (1)
  1. STRENSIQ [Suspect]
     Active Substance: ASFOTASE ALFA
     Indication: Hypophosphatasia
     Dosage: 2 MG/KG, TIW
     Route: 065

REACTIONS (4)
  - Joint swelling [Recovering/Resolving]
  - Injection site bruising [Unknown]
  - Injection site atrophy [Unknown]
  - Injection site erythema [Unknown]
